FAERS Safety Report 9659516 (Version 2)
Quarter: 2013Q4

REPORT INFORMATION
  Report Type: Report from Study
  Country: MX (occurrence: MX)
  Receive Date: 20131031
  Receipt Date: 20131031
  Transmission Date: 20140711
  Serious: Yes (Life-Threatening, Other)
  Sender: FDA-Public Use
  Company Number: PHHY2011MX18174

PATIENT
  Age: 71 Year
  Sex: Male

DRUGS (2)
  1. DIOVAN [Suspect]
     Indication: HYPERTENSION
     Dosage: 160 MG, DAILY
     Route: 048
     Dates: start: 20110225
  2. DIOVAN [Suspect]
     Dosage: 320 MG, DAILY
     Route: 048
     Dates: start: 201102

REACTIONS (7)
  - Apparent death [Unknown]
  - Liver injury [Unknown]
  - Heart rate increased [Recovering/Resolving]
  - Eye pain [Recovering/Resolving]
  - Cough [Not Recovered/Not Resolved]
  - Headache [Recovering/Resolving]
  - Incorrect dose administered [Recovered/Resolved]
